FAERS Safety Report 15893455 (Version 1)
Quarter: 2019Q1

REPORT INFORMATION
  Report Type: Spontaneous
  Country: FR (occurrence: FR)
  Receive Date: 20190131
  Receipt Date: 20190131
  Transmission Date: 20190417
  Serious: Yes (Hospitalization)
  Sender: FDA-Public Use
  Company Number: FR-TEVA-2019-FR-1004288

PATIENT
  Age: 71 Year
  Sex: Female
  Weight: 48 kg

DRUGS (2)
  1. CAPECITABINE. [Suspect]
     Active Substance: CAPECITABINE
     Indication: RECTAL NEOPLASM
     Dosage: 2000 MILLIGRAM DAILY;
     Route: 048
     Dates: start: 20171124, end: 201807
  2. MITOMYCINE C [Suspect]
     Active Substance: MITOMYCIN
     Indication: RECTAL NEOPLASM
     Route: 041
     Dates: start: 20171124

REACTIONS (1)
  - Thrombotic microangiopathy [Not Recovered/Not Resolved]

NARRATIVE: CASE EVENT DATE: 20181114
